FAERS Safety Report 19289691 (Version 1)
Quarter: 2021Q2

REPORT INFORMATION
  Report Type: Spontaneous
  Country: US (occurrence: US)
  Receive Date: 20210522
  Receipt Date: 20210522
  Transmission Date: 20210717
  Serious: No
  Sender: FDA-Public Use
  Company Number: US-LUPIN PHARMACEUTICALS INC.-2021-05669

PATIENT

DRUGS (2)
  1. LISINOPRIL TABLETS USP, 20MG [Suspect]
     Active Substance: LISINOPRIL
     Dosage: UNK
     Route: 065
     Dates: start: 2021
  2. LISINOPRIL TABLETS USP, 20MG [Suspect]
     Active Substance: LISINOPRIL
     Indication: PRODUCT USED FOR UNKNOWN INDICATION
     Dosage: UNK
     Route: 065
     Dates: start: 201806

REACTIONS (3)
  - Rash [Unknown]
  - Joint swelling [Unknown]
  - Muscular weakness [Unknown]

NARRATIVE: CASE EVENT DATE: 2018
